FAERS Safety Report 22323112 (Version 1)
Quarter: 2023Q2

REPORT INFORMATION
  Report Type: Spontaneous
  Country: US (occurrence: None)
  Receive Date: 20230512
  Receipt Date: 20230512
  Transmission Date: 20230722
  Serious: Yes (Disabling)
  Sender: FDA-Public Use
  Company Number: None

PATIENT
  Age: 28 Year
  Sex: Male
  Weight: 108 kg

DRUGS (1)
  1. LEXAPRO [Suspect]
     Active Substance: ESCITALOPRAM OXALATE
     Dates: start: 20230111, end: 20230316

REACTIONS (5)
  - Sexual dysfunction [None]
  - Blunted affect [None]
  - Anhedonia [None]
  - Genital hypoaesthesia [None]
  - Cognitive disorder [None]

NARRATIVE: CASE EVENT DATE: 20230317
